FAERS Safety Report 4676192-6 (Version None)
Quarter: 2005Q2

REPORT INFORMATION
  Report Type: 
  Country: None (occurrence: None)
  Receive Date: 20050527
  Receipt Date: 20050408
  Transmission Date: 20051028
  Serious: Yes (Hospitalization, Other)
  Sender: FDA-Public Use
  Company Number: US-GLAXOSMITHKLINE-A0554057A

PATIENT
  Age: 29 Year
  Sex: Female

DRUGS (4)
  1. WELLBUTRIN XL [Suspect]
     Indication: MAJOR DEPRESSION
     Route: 048
     Dates: start: 20050105, end: 20050209
  2. PAXIL CR [Concomitant]
     Dosage: 25MG PER DAY
     Route: 048
  3. KLONOPIN [Concomitant]
     Dosage: 5MG TWICE PER DAY
  4. ABILIFY [Concomitant]
     Dosage: 5MG AT NIGHT

REACTIONS (1)
  - GRAND MAL CONVULSION [None]
